FAERS Safety Report 10017313 (Version 1)
Quarter: 2014Q1

REPORT INFORMATION
  Report Type: Spontaneous
  Country: US (occurrence: US)
  Receive Date: 20140318
  Receipt Date: 20140318
  Transmission Date: 20141002
  Serious: Yes (Hospitalization)
  Sender: FDA-Public Use
  Company Number: US-JNJFOC-20140306424

PATIENT
  Age: 70 Year
  Sex: Male
  Weight: 90 kg

DRUGS (10)
  1. XARELTO [Suspect]
     Indication: CEREBROVASCULAR ACCIDENT PROPHYLAXIS
     Route: 048
     Dates: start: 20131015, end: 20131020
  2. XARELTO [Suspect]
     Indication: ATRIAL FIBRILLATION
     Route: 048
     Dates: start: 20131015, end: 20131020
  3. TRAMADOL [Concomitant]
     Route: 048
  4. ORPHENADRINE [Concomitant]
     Route: 048
  5. DILTIAZEM [Concomitant]
     Route: 048
  6. FUROSEMIDE [Concomitant]
     Route: 065
  7. FOLIC ACID [Concomitant]
     Route: 048
  8. LISINOPRIL HYDROCHLORTHIAZID [Concomitant]
     Dosage: 20-25 MG
     Route: 048
  9. FISH OIL [Concomitant]
     Route: 048
  10. THIAMINE [Concomitant]
     Route: 048

REACTIONS (2)
  - Deep vein thrombosis [Unknown]
  - Incorrect dose administered [Unknown]
